APPROVED DRUG PRODUCT: QUIBRON-T
Active Ingredient: THEOPHYLLINE
Strength: 300MG
Dosage Form/Route: TABLET;ORAL
Application: A088656 | Product #001
Applicant: MONARCH PHARMACEUTICALS INC
Approved: Aug 22, 1985 | RLD: No | RS: No | Type: DISCN